FAERS Safety Report 5939112-X (Version None)
Quarter: 2008Q4

REPORT INFORMATION
  Report Type: 
  Country: None (occurrence: None)
  Receive Date: 20081103
  Receipt Date: 20081029
  Transmission Date: 20090506
  Serious: Yes (Other)
  Sender: FDA-Public Use
  Company Number: B0544109A

PATIENT
  Age: 29 Year
  Sex: Female

DRUGS (4)
  1. WELLBUTRIN [Suspect]
     Dosage: 300MG PER DAY
     Route: 065
     Dates: start: 20081017, end: 20081022
  2. SEROQUEL [Suspect]
     Dosage: 50MG TWICE PER DAY
     Route: 065
  3. DIAZEPAM [Suspect]
     Indication: ANXIETY
     Dosage: 2MG FOUR TIMES PER DAY
  4. ZOLPIDEM TARTRATE [Suspect]
     Indication: INSOMNIA
     Dosage: 20MG PER DAY
     Route: 065

REACTIONS (2)
  - AGGRESSION [None]
  - EMOTIONAL DISORDER [None]
